FAERS Safety Report 21756305 (Version 1)
Quarter: 2022Q4

REPORT INFORMATION
  Report Type: Spontaneous
  Country: US (occurrence: US)
  Receive Date: 20221220
  Receipt Date: 20221220
  Transmission Date: 20230113
  Serious: Yes (Hospitalization)
  Sender: FDA-Public Use
  Company Number: US-JAZZ-2022-US-034489

PATIENT
  Age: 76 Year
  Sex: Male
  Weight: 74.83 kg

DRUGS (4)
  1. ZEPZELCA [Suspect]
     Active Substance: LURBINECTEDIN
     Indication: Small cell lung cancer metastatic
     Dosage: 4 MILLIGRAM, EVERY THREE WEEKS
     Route: 042
     Dates: start: 20221003, end: 20221103
  2. ZEPZELCA [Suspect]
     Active Substance: LURBINECTEDIN
     Dosage: 4 MILLIGRAM
     Route: 042
     Dates: start: 20221103
  3. DEXAMETHASONE [Concomitant]
     Active Substance: DEXAMETHASONE
     Dosage: 10 MILLIGRAM
     Dates: start: 20221003, end: 20221103
  4. CINVANTI [Concomitant]
     Active Substance: APREPITANT
     Dosage: UNK
     Dates: start: 20221003, end: 20221103

REACTIONS (2)
  - Infusion site reaction [Recovered/Resolved]
  - Injection site extravasation [Not Recovered/Not Resolved]

NARRATIVE: CASE EVENT DATE: 20221103
